FAERS Safety Report 10439176 (Version 1)
Quarter: 2014Q3

REPORT INFORMATION
  Report Type: Spontaneous
  Country: US (occurrence: US)
  Receive Date: 20140908
  Receipt Date: 20140908
  Transmission Date: 20150326
  Serious: No
  Sender: FDA-Public Use
  Company Number: US-BRISTOL-MYERS SQUIBB COMPANY-20611950

PATIENT
  Age: 14 Year
  Sex: Female
  Weight: 82.99 kg

DRUGS (2)
  1. ZOLOFT [Concomitant]
     Active Substance: SERTRALINE HYDROCHLORIDE
  2. ABILIFY [Suspect]
     Active Substance: ARIPIPRAZOLE
     Indication: BIPOLAR DISORDER
     Dosage: 1DF: HALF TAB
     Dates: start: 201404

REACTIONS (8)
  - Chills [Unknown]
  - Visual impairment [Unknown]
  - Oropharyngeal pain [Unknown]
  - Nausea [Unknown]
  - Insomnia [Unknown]
  - Hyperhidrosis [Unknown]
  - Dizziness [Unknown]
  - Dysphagia [Unknown]
